FAERS Safety Report 7576872-9 (Version None)
Quarter: 2011Q2

REPORT INFORMATION
  Report Type: 
  Country: None (occurrence: None)
  Receive Date: 20110628
  Receipt Date: 20080811
  Transmission Date: 20111010
  Serious: Yes (Other)
  Sender: FDA-Public Use
  Company Number: US-BAYER-200830384NA

PATIENT
  Age: 37 Year
  Sex: Female

DRUGS (69)
  1. AMIODARONE HCL [Concomitant]
     Dosage: CONTINUOUS INFUSION
     Route: 042
  2. REGLAN [Concomitant]
     Route: 048
  3. REGULAR INSULIN [Concomitant]
     Dosage: SLIDING SCALE
     Route: 058
  4. REGULAR INSULIN [Concomitant]
     Dosage: SLIDING SCALE
     Route: 058
     Dates: start: 20050912
  5. VANCOMYCIN [Concomitant]
     Indication: ENDOCARDITIS
     Dosage: 1 GM EVERY 12 HOURS
     Route: 042
     Dates: start: 20050222
  6. AVAPRO [Concomitant]
     Dosage: 150 MG, BID
     Route: 048
  7. PEPCID [Concomitant]
     Dosage: UNK
     Route: 042
     Dates: start: 20050303
  8. HEPARIN [Concomitant]
     Dosage: 9,000 UNITS
     Route: 042
     Dates: start: 20050303
  9. GENTAMICIN [Concomitant]
     Indication: ENDOCARDITIS
     Dosage: UNK
     Dates: start: 20050303
  10. TRASYLOL [Suspect]
  11. PROTONIX [Concomitant]
     Dosage: 40 MG, QD
     Route: 048
  12. K-DUR [Concomitant]
     Dosage: 40 MEG DAILY
     Route: 048
  13. AMIODARONE HCL [Concomitant]
     Dosage: UNK
     Dates: start: 20050303
  14. NITROGLYCERIN [Concomitant]
     Route: 060
  15. PLAVIX [Concomitant]
     Dosage: 75 MG, QD
     Route: 048
  16. WARFARIN SODIUM [Concomitant]
     Dosage: UNK
     Route: 048
     Dates: start: 20050912
  17. MARIJUANA [Concomitant]
  18. TRASYLOL [Suspect]
     Indication: PRODUCT USED FOR UNKNOWN INDICATION
     Dosage: 200 ML LOADING DOSE
     Route: 042
     Dates: start: 20051011
  19. METOPROLOL TARTRATE [Concomitant]
     Dosage: 25 MG AS DIRECTED
     Route: 048
  20. PROTONIX [Concomitant]
     Dosage: 40 MG, QD
     Route: 048
     Dates: start: 20051112
  21. LOPRESSOR [Concomitant]
     Dosage: 100 MG, BID
     Route: 048
  22. LASIX [Concomitant]
     Dosage: 20 MG, BID, IV PUSH SLOW 10MG/MIN
     Route: 040
  23. ZOSYN [Concomitant]
  24. LEVAQUIN [Concomitant]
  25. DOCUSATE SODIUM [Concomitant]
     Dosage: 100 MG, BID
     Route: 048
  26. VERSED [Concomitant]
     Dosage: UNK
     Route: 042
     Dates: start: 20050303
  27. SODIUM BICARBONATE [Concomitant]
     Dosage: UNK
     Route: 042
     Dates: start: 20050303
  28. K-DUR [Concomitant]
     Dosage: 40 MEQ, QD
     Route: 048
  29. OXYCODONE HCL [Concomitant]
     Route: 048
  30. VANCOMYCIN [Concomitant]
     Dosage: UNK
     Dates: start: 20050303
  31. DIGOXIN [Concomitant]
     Dosage: 0.125MG QD
     Route: 048
     Dates: start: 20050912
  32. ASPIRIN [Concomitant]
     Route: 048
  33. FENTANYL [Concomitant]
     Dosage: UNK
     Route: 042
     Dates: start: 20050303
  34. PROTAMINE SULFATE [Concomitant]
     Dosage: UNK
     Route: 042
     Dates: start: 20050303
  35. GLUCOSE [Concomitant]
     Dosage: UNK
     Route: 042
     Dates: start: 20050303
  36. HEPARIN [Concomitant]
     Dosage: 38,000 UNITS
     Route: 042
     Dates: start: 20050303
  37. ACETAMINOPHEN [Concomitant]
     Dosage: 975 MG, UNK
     Route: 048
  38. VICODIN [Concomitant]
     Dosage: UNK
     Route: 048
  39. GLYBURIDE [Concomitant]
     Dosage: 2.5 MG, QD
     Route: 048
  40. GLYBURIDE [Concomitant]
     Dosage: 2.5 MG, QD (WITH DINNER)
     Route: 048
     Dates: start: 20050912
  41. AMIODARONE HCL [Concomitant]
     Dosage: 400 MG, BID
     Route: 048
  42. HEPARIN [Concomitant]
     Dosage: 10,000 UNITS
     Route: 042
     Dates: start: 20050303
  43. VICODIN [Concomitant]
     Dosage: 5-500MG, 1-2 EVERY 6 HOURS AS NEEDED FOR PAIN
     Route: 048
     Dates: start: 20050912
  44. METOPROLOL TARTRATE [Concomitant]
     Dosage: 50 MG, BID
     Route: 048
  45. METOPROLOL TARTRATE [Concomitant]
     Dosage: 50 MG AS DIRECTED
     Route: 048
     Dates: start: 20050912
  46. HYDRALAZINE HCL [Concomitant]
     Dosage: 20 MG, TID
     Route: 048
  47. LASIX [Concomitant]
     Dosage: 40 MG, QD, IV PUSH SLOW 10 MG/MIN
     Route: 042
     Dates: start: 20050912
  48. ZOCOR [Concomitant]
     Dosage: 40 MG, HS
     Route: 048
  49. DIGOXIN [Concomitant]
     Dosage: 0.125 MG, QD
     Route: 048
  50. ROCEPHIN [Concomitant]
     Dosage: 1 GM
     Route: 042
     Dates: start: 20050912
  51. PANCURONIUM [Concomitant]
     Dosage: UNK
     Route: 042
     Dates: start: 20050303
  52. NEOSYNEPHRINE [Concomitant]
     Dosage: UNK
     Route: 042
     Dates: start: 20050303
  53. NORVASC [Concomitant]
     Dosage: 5 MG, QD
     Route: 048
  54. LASIX [Concomitant]
     Dosage: 40 MG, BID
     Route: 048
  55. SINGULAIR [Concomitant]
     Dosage: 10 MG, QD
     Route: 048
  56. LISINOPRIL [Concomitant]
     Dosage: 10 MG, BID
     Route: 048
  57. K-DUR [Concomitant]
     Dosage: 40 MEQ, QD
     Route: 048
     Dates: start: 20080912
  58. MILK OF MAGNESIA TAB [Concomitant]
     Dosage: 30 ML, HS
     Route: 048
  59. LIDOCAINE [Concomitant]
     Dosage: UNK
     Route: 042
     Dates: start: 20050303
  60. MAGNESIUM [Concomitant]
     Dosage: 5 GM
     Route: 042
     Dates: start: 20050303
  61. MANNITOL [Concomitant]
     Dosage: UNK
     Route: 042
     Dates: start: 20050303
  62. COCAINE [Concomitant]
  63. NORVASC [Concomitant]
     Dosage: 10 MG, QD
     Route: 048
  64. LISINOPRIL [Concomitant]
     Dosage: 20 MG, QD
     Route: 048
     Dates: start: 20050912
  65. DOCUSATE SODIUM [Concomitant]
     Dosage: UNK
     Route: 048
     Dates: start: 20050912
  66. DALTEPARIN SODIUM [Concomitant]
     Dosage: 5000 U/0.2 ML DAILY
     Route: 058
  67. ASPIRIN [Concomitant]
     Dosage: 325 MG, QD
     Route: 048
  68. PERCOCET [Concomitant]
     Dosage: 5/325 EVERY 6 HOURS AS NEEDED
     Route: 048
  69. HEPARIN [Concomitant]
     Dosage: 9,000 UNITS
     Route: 042
     Dates: start: 20050303

REACTIONS (11)
  - UNEVALUABLE EVENT [None]
  - FEAR [None]
  - RENAL IMPAIRMENT [None]
  - RENAL FAILURE [None]
  - MULTI-ORGAN FAILURE [None]
  - STRESS [None]
  - RENAL INJURY [None]
  - PAIN [None]
  - ANHEDONIA [None]
  - INJURY [None]
  - ANXIETY [None]
